FAERS Safety Report 8093315-X (Version None)
Quarter: 2012Q1

REPORT INFORMATION
  Report Type: 
  Country: None (occurrence: None)
  Receive Date: 20120128
  Receipt Date: 20111013
  Transmission Date: 20120608
  Serious: No
  Sender: FDA-Public Use
  Company Number: US-ABBOTT-11P-163-0847471-00

PATIENT
  Age: 60 Year
  Sex: Female

DRUGS (15)
  1. HAND LOTIONS [Concomitant]
     Indication: PSORIASIS
  2. METHOTREXATE [Suspect]
     Indication: PSORIASIS
     Dosage: INCREASED TO 8 PILLS
  3. STOOL SOFTENER [Concomitant]
     Indication: CONSTIPATION PROPHYLAXIS
  4. METHADONE HCL [Suspect]
     Indication: BACK PAIN
  5. LYRICA [Concomitant]
     Indication: FIBROMYALGIA
  6. TIZANIDINE HCL [Concomitant]
     Indication: PRODUCT USED FOR UNKNOWN INDICATION
     Dosage: 1 IN DAY AND 2 AT NIGHT
  7. HUMIRA [Suspect]
     Indication: PSORIATIC ARTHROPATHY
     Dates: start: 20040101, end: 20110201
  8. METHOTREXATE [Suspect]
     Indication: PSORIATIC ARTHROPATHY
     Dosage: DOSAGE INCREASED
  9. CELEBREX [Concomitant]
     Indication: PRODUCT USED FOR UNKNOWN INDICATION
     Dosage: DAILY
  10. CYMBALTA [Concomitant]
     Indication: ANXIETY
  11. OMEPRAZOLE [Concomitant]
     Indication: GASTROOESOPHAGEAL REFLUX DISEASE
  12. ASPIRIN [Concomitant]
     Indication: PRODUCT USED FOR UNKNOWN INDICATION
  13. OXYCODONE HCL [Concomitant]
     Indication: BREAKTHROUGH PAIN
     Dosage: 3-4 TIMES PER DAY
  14. METHOTREXATE [Suspect]
     Dosage: DECREASED DOSAGE AFTER ENZYMES DECREASED
  15. FLAXSEED OIL [Concomitant]
     Indication: PRODUCT USED FOR UNKNOWN INDICATION

REACTIONS (8)
  - PSORIASIS [None]
  - PAIN [None]
  - JOINT EFFUSION [None]
  - HYPERHIDROSIS [None]
  - ARTHRALGIA [None]
  - BLOOD COUNT ABNORMAL [None]
  - BLOOD PRESSURE INCREASED [None]
  - HEPATIC ENZYME INCREASED [None]
